FAERS Safety Report 11951616 (Version 1)
Quarter: 2016Q1

REPORT INFORMATION
  Report Type: Report from Study
  Country: US (occurrence: US)
  Receive Date: 20160126
  Receipt Date: 20160126
  Transmission Date: 20160526
  Serious: Yes (Hospitalization)
  Sender: FDA-Public Use
  Company Number: US-ABBVIE-16K-163-1543936-00

PATIENT
  Age: 57 Year
  Sex: Female

DRUGS (2)
  1. LASIX [Concomitant]
     Active Substance: FUROSEMIDE
     Indication: FLUID RETENTION
     Route: 048
  2. HUMIRA [Suspect]
     Active Substance: ADALIMUMAB
     Indication: RHEUMATOID ARTHRITIS
     Route: 058
     Dates: start: 20150828

REACTIONS (5)
  - Swelling face [Unknown]
  - Nausea [Unknown]
  - Fluid retention [Unknown]
  - Peripheral swelling [Unknown]
  - Dysphagia [Unknown]

NARRATIVE: CASE EVENT DATE: 20160104
